FAERS Safety Report 24350044 (Version 1)
Quarter: 2024Q3

REPORT INFORMATION
  Report Type: Report from Study
  Country: CA (occurrence: CA)
  Receive Date: 20240923
  Receipt Date: 20240923
  Transmission Date: 20241016
  Serious: No
  Sender: ROCHE
  Company Number: CA-ROCHE-3484846

PATIENT
  Sex: Female
  Weight: 83.0 kg

DRUGS (6)
  1. HERCEPTIN [Suspect]
     Active Substance: TRASTUZUMAB
     Indication: Breast cancer
     Dosage: RECEIVED OUTSIDE RPAP
     Route: 065
  2. PERJETA [Suspect]
     Active Substance: PERTUZUMAB
     Indication: Breast cancer
     Dosage: LOADING DOSE
     Route: 042
     Dates: start: 20231019, end: 20231019
  3. PERJETA [Suspect]
     Active Substance: PERTUZUMAB
     Route: 042
     Dates: start: 20231109, end: 20240417
  4. PERJETA [Suspect]
     Active Substance: PERTUZUMAB
     Route: 042
     Dates: start: 20240527
  5. PERJETA [Suspect]
     Active Substance: PERTUZUMAB
     Route: 042
  6. TAXOL [Concomitant]
     Active Substance: PACLITAXEL

REACTIONS (2)
  - Weight increased [Unknown]
  - Nasopharyngitis [Unknown]
